FAERS Safety Report 5926081-1 (Version None)
Quarter: 2008Q4

REPORT INFORMATION
  Report Type: 
  Country: None (occurrence: None)
  Receive Date: 20081016
  Receipt Date: 20081009
  Transmission Date: 20090506
  Serious: Yes (Death, Hospitalization, Other)
  Sender: FDA-Public Use
  Company Number: 2007JP004909

PATIENT
  Age: 63 Year
  Sex: Male

DRUGS (5)
  1. TACROLIMUS [Suspect]
     Indication: RHEUMATOID ARTHRITIS
     Dosage: 2 MG, UNKNOWN/D, ORAL
     Route: 048
     Dates: start: 20050805, end: 20070724
  2. PRELONE (PREDNISOLONE) [Concomitant]
  3. NAIXAN (NAPROXEN SODIUM) [Concomitant]
  4. AZULFIDINE EN PER ORAL [Concomitant]
  5. MUCOSTA (REBAMIPIDE) TABLET [Concomitant]

REACTIONS (4)
  - INTERSTITIAL LUNG DISEASE [None]
  - LUNG ADENOCARCINOMA [None]
  - RESPIRATORY FAILURE [None]
  - RETINAL TEAR [None]
